FAERS Safety Report 19165129 (Version 7)
Quarter: 2021Q4

REPORT INFORMATION
  Report Type: Report from Study
  Country: US (occurrence: US)
  Receive Date: 20210421
  Receipt Date: 20211229
  Transmission Date: 20220303
  Serious: No
  Sender: FDA-Public Use
  Company Number: NVSC2021US089826

PATIENT
  Sex: Male

DRUGS (3)
  1. ENTRESTO [Suspect]
     Active Substance: SACUBITRIL\VALSARTAN
     Indication: Product used for unknown indication
     Dosage: 200 MG, BID (EVERY 12 HOURS)
     Route: 048
     Dates: start: 20210417
  2. HYDROCHLOROTHIAZIDE\LOSARTAN POTASSIUM [Suspect]
     Active Substance: HYDROCHLOROTHIAZIDE\LOSARTAN POTASSIUM
     Indication: Product used for unknown indication
     Dosage: UNK
     Route: 065
  3. METOPROLOL [Suspect]
     Active Substance: METOPROLOL
     Indication: Product used for unknown indication
     Dosage: UNK
     Route: 065

REACTIONS (8)
  - Diabetic neuropathy [Not Recovered/Not Resolved]
  - Gait disturbance [Unknown]
  - Hypertension [Recovering/Resolving]
  - Cerebral disorder [Unknown]
  - Nerve compression [Unknown]
  - Pain [Unknown]
  - Angiopathy [Unknown]
  - Drug intolerance [Unknown]
